FAERS Safety Report 4668528-7 (Version None)
Quarter: 2005Q2

REPORT INFORMATION
  Report Type: 
  Country: None (occurrence: None)
  Receive Date: 20050523
  Receipt Date: 20050411
  Transmission Date: 20051028
  Serious: Yes (Other)
  Sender: FDA-Public Use
  Company Number: PHNR2005AU00739

PATIENT
  Sex: Female

DRUGS (2)
  1. ZOLADEX [Concomitant]
  2. ZOMETA [Suspect]

REACTIONS (5)
  - ASEPTIC NECROSIS BONE [None]
  - FISTULA [None]
  - JAW OPERATION [None]
  - OSTEONECROSIS [None]
  - SINUSITIS [None]
